FAERS Safety Report 7724866-2 (Version None)
Quarter: 2011Q3

REPORT INFORMATION
  Report Type: 
  Country: None (occurrence: None)
  Receive Date: 20110901
  Receipt Date: 20110824
  Transmission Date: 20111222
  Serious: Yes (Hospitalization)
  Sender: FDA-Public Use
  Company Number: BR-MEDIMMUNE-MEDI-0013509

PATIENT
  Sex: Male
  Weight: 9 kg

DRUGS (6)
  1. DOMPERIDONE [Concomitant]
     Route: 048
     Dates: start: 20100418
  2. SODIUM CHLORIDE 0.9% [Concomitant]
     Dates: start: 20100418
  3. SYNAGIS [Suspect]
     Route: 030
     Dates: start: 20100920, end: 20100920
  4. SYNAGIS [Suspect]
     Indication: BRONCHOPULMONARY DYSPLASIA
  5. PROTOVIT [Concomitant]
     Indication: VITAMIN SUPPLEMENTATION
     Route: 048
     Dates: start: 20100418
  6. FERROUS SULFATE TAB [Concomitant]
     Route: 048
     Dates: start: 20100418

REACTIONS (7)
  - BRONCHOSPASM [None]
  - BRONCHIOLITIS [None]
  - INCREASED BRONCHIAL SECRETION [None]
  - PYREXIA [None]
  - BRONCHOPNEUMONIA [None]
  - PNEUMONIA [None]
  - OXYGEN SATURATION DECREASED [None]
